FAERS Safety Report 7812777-3 (Version None)
Quarter: 2011Q4

REPORT INFORMATION
  Report Type: 
  Country: None (occurrence: None)
  Receive Date: 20111011
  Receipt Date: 20110927
  Transmission Date: 20120403
  Serious: Yes (Hospitalization)
  Sender: FDA-Public Use
  Company Number: 2011S1001091

PATIENT
  Age: 79 Year
  Sex: Male

DRUGS (3)
  1. CLARITIN /00917501/ [Concomitant]
  2. SINGULAIR [Concomitant]
  3. LIVALO [Suspect]
     Indication: DYSLIPIDAEMIA
     Dosage: 2 MG; 1X; PO
     Route: 048
     Dates: start: 20110315, end: 20110419

REACTIONS (2)
  - MALAISE [None]
  - HEPATIC FUNCTION ABNORMAL [None]
